FAERS Safety Report 4344708-5 (Version None)
Quarter: 2004Q2

REPORT INFORMATION
  Report Type: 
  Country: None (occurrence: None)
  Receive Date: 20040420
  Receipt Date: 20040407
  Transmission Date: 20050107
  Serious: Yes (Death, Other)
  Sender: FDA-Public Use
  Company Number: 2004208316GB

PATIENT
  Sex: Male

DRUGS (1)
  1. LINEZOLID (LINEZOLID) SOLUTION, STERILE [Suspect]

REACTIONS (3)
  - PIGMENTATION DISORDER [None]
  - RASH [None]
  - VARICELLA [None]
